FAERS Safety Report 5983609-3 (Version None)
Quarter: 2008Q4

REPORT INFORMATION
  Report Type: 
  Country: None (occurrence: None)
  Receive Date: 20081208
  Receipt Date: 20071207
  Transmission Date: 20090506
  Serious: No
  Sender: FDA-Public Use
  Company Number: US-AMGEN-KDL256074

PATIENT
  Sex: Female

DRUGS (3)
  1. ENBREL [Suspect]
     Indication: RHEUMATOID ARTHRITIS
     Route: 058
     Dates: start: 20071027
  2. SULFASALAZINE [Concomitant]
     Route: 048
     Dates: start: 20071101
  3. METHOTREXATE [Concomitant]
     Route: 048
     Dates: start: 20071101

REACTIONS (1)
  - URTICARIA [None]
